FAERS Safety Report 9736610 (Version 2)
Quarter: 2014Q2

REPORT INFORMATION
  Report Type: Spontaneous
  Country: US (occurrence: US)
  Receive Date: 20131206
  Receipt Date: 20140428
  Transmission Date: 20141212
  Serious: No
  Sender: FDA-Public Use
  Company Number: US-BIOGENIDEC-2013BI098483

PATIENT
  Age: 64 Year
  Sex: Female

DRUGS (5)
  1. TECFIDERA [Suspect]
     Indication: MULTIPLE SCLEROSIS
     Route: 048
     Dates: start: 20130828
  2. AMPYRA [Concomitant]
     Route: 048
     Dates: start: 20130819, end: 2013
  3. AMPYRA [Concomitant]
     Route: 048
     Dates: start: 2013
  4. ALENDRONATE SODIUM [Concomitant]
  5. DILTIAZEM [Concomitant]

REACTIONS (6)
  - Faeces discoloured [Unknown]
  - Gait disturbance [Unknown]
  - Balance disorder [Unknown]
  - Nausea [Unknown]
  - Abdominal discomfort [Unknown]
  - Diarrhoea [Unknown]
